FAERS Safety Report 6745044-X (Version None)
Quarter: 2010Q2

REPORT INFORMATION
  Report Type: 
  Country: None (occurrence: None)
  Receive Date: 20100527
  Receipt Date: 20100517
  Transmission Date: 20101027
  Serious: Yes (Hospitalization, Other)
  Sender: FDA-Public Use
  Company Number: US-WATSON-2010-06682

PATIENT
  Age: 16 Year
  Sex: Female

DRUGS (1)
  1. GUANFACINE (WATSON LABORATORIES) [Suspect]
     Indication: TOURETTE'S DISORDER
     Dosage: 25 MG, SINGLE
     Route: 048

REACTIONS (4)
  - ELECTROCARDIOGRAM QT PROLONGED [None]
  - HYPERTENSION [None]
  - ORTHOSTATIC HYPOTENSION [None]
  - OVERDOSE [None]
